FAERS Safety Report 8403487-2 (Version None)
Quarter: 2012Q2

REPORT INFORMATION
  Report Type: 
  Country: None (occurrence: None)
  Receive Date: 20120601
  Receipt Date: 20120524
  Transmission Date: 20120825
  Serious: Yes (Hospitalization)
  Sender: FDA-Public Use
  Company Number: US-JNJFOC-20120400976

PATIENT
  Sex: Female
  Weight: 63.8 kg

DRUGS (5)
  1. MESALAMINE [Concomitant]
     Route: 048
  2. REMICADE [Suspect]
     Indication: CROHN'S DISEASE
     Route: 042
     Dates: start: 20120402
  3. REMICADE [Suspect]
     Route: 042
     Dates: start: 20021105, end: 20090223
  4. IBUPROFEN [Suspect]
     Indication: PRODUCT USED FOR UNKNOWN INDICATION
  5. ACETAMINOPHEN [Concomitant]

REACTIONS (1)
  - CROHN'S DISEASE [None]
